FAERS Safety Report 13856338 (Version 2)
Quarter: 2017Q3

REPORT INFORMATION
  Report Type: Spontaneous
  Country: BR (occurrence: BR)
  Receive Date: 20170810
  Receipt Date: 20170915
  Transmission Date: 20171127
  Serious: Yes (Hospitalization)
  Sender: FDA-Public Use
  Company Number: BR-SA-2017SA143346

PATIENT
  Age: 64 Year
  Sex: Male
  Weight: 90 kg

DRUGS (12)
  1. OXALIPLATIN. [Suspect]
     Active Substance: OXALIPLATIN
     Dosage: REDUCTION OF 25% SINCE THE FIRST CYCLE
     Route: 065
     Dates: start: 20170706, end: 20170706
  2. CALCIUM FOLINATE [Suspect]
     Active Substance: LEUCOVORIN CALCIUM
     Dosage: REDUCTION OF 25% SINCE THE FIRST CYCLE
     Route: 065
     Dates: start: 20170706, end: 20170706
  3. CALCIUM FOLINATE [Suspect]
     Active Substance: LEUCOVORIN CALCIUM
     Route: 065
     Dates: start: 20170616, end: 20170616
  4. FLUOROURACIL. [Suspect]
     Active Substance: FLUOROURACIL
     Route: 065
     Dates: start: 20170616, end: 20170616
  5. FLUOROURACIL. [Suspect]
     Active Substance: FLUOROURACIL
     Dosage: REDUCTION OF 25% SINCE THE FIRST CYCLE
     Route: 065
     Dates: start: 20170706, end: 20170706
  6. FLUOROURACIL. [Suspect]
     Active Substance: FLUOROURACIL
     Dosage: REDUCTION OF 25% SINCE THE FIRST CYCLE
     Route: 065
     Dates: start: 20170720, end: 20170720
  7. OXALIPLATIN. [Suspect]
     Active Substance: OXALIPLATIN
     Dosage: REDUCTION OF 25% SINCE THE FIRST CYCLE
     Route: 065
     Dates: start: 20170720, end: 20170720
  8. TAXOTERE [Suspect]
     Active Substance: DOCETAXEL
     Indication: OESOPHAGEAL ADENOCARCINOMA
     Route: 051
     Dates: start: 20170720, end: 20170720
  9. OXALIPLATIN. [Suspect]
     Active Substance: OXALIPLATIN
     Route: 065
     Dates: start: 20170616, end: 20170616
  10. CALCIUM FOLINATE [Suspect]
     Active Substance: LEUCOVORIN CALCIUM
     Dosage: REDUCTION OF 25% SINCE THE FIRST CYCLE
     Route: 065
     Dates: start: 20170720, end: 20170720
  11. TAXOTERE [Suspect]
     Active Substance: DOCETAXEL
     Indication: OESOPHAGEAL ADENOCARCINOMA
     Dosage: DOCETAXEL) / 80MG/4ML
     Route: 051
     Dates: start: 20170619, end: 20170619
  12. TAXOTERE [Suspect]
     Active Substance: DOCETAXEL
     Indication: OESOPHAGEAL ADENOCARCINOMA
     Route: 051
     Dates: start: 20170706, end: 20170706

REACTIONS (13)
  - Dehydration [Unknown]
  - Pyrexia [Unknown]
  - Papule [Unknown]
  - Asthenia [Unknown]
  - Diarrhoea [Unknown]
  - Hyponatraemia [Unknown]
  - Alopecia [Unknown]
  - Skin exfoliation [Unknown]
  - Neuropathy peripheral [Unknown]
  - Dry skin [Unknown]
  - Cheilitis [Unknown]
  - Palatal disorder [Unknown]
  - Palmar-plantar erythrodysaesthesia syndrome [Unknown]
